FAERS Safety Report 6503910-4 (Version None)
Quarter: 2009Q4

REPORT INFORMATION
  Report Type: 
  Country: None (occurrence: None)
  Receive Date: 20091217
  Receipt Date: 20091217
  Transmission Date: 20100525
  Serious: Yes (Other)
  Sender: FDA-Public Use
  Company Number: US-PFIZER INC-2009294327

PATIENT
  Sex: Male
  Weight: 72.574 kg

DRUGS (1)
  1. CHANTIX [Suspect]
     Indication: SMOKING CESSATION THERAPY
     Dosage: 0.5 MG, 1X/DAY
     Dates: start: 20091023, end: 20091101

REACTIONS (4)
  - AGGRESSION [None]
  - ANXIETY [None]
  - DEPRESSION [None]
  - PSYCHOTIC DISORDER [None]
